FAERS Safety Report 14966450 (Version 1)
Quarter: 2018Q2

REPORT INFORMATION
  Report Type: Spontaneous
  Country: FR (occurrence: FR)
  Receive Date: 20180604
  Receipt Date: 20180604
  Transmission Date: 20180711
  Serious: Yes (Death, Other)
  Sender: FDA-Public Use
  Company Number: FR-009507513-1805FRA015109

PATIENT
  Age: 78 Year
  Sex: Male

DRUGS (6)
  1. ZERBAXA [Suspect]
     Active Substance: CEFTOLOZANE SULFATE\TAZOBACTAM SODIUM
     Indication: PSEUDOMONAS INFECTION
     Dosage: INFUSION OF 250 MG, EVERY 8 HOUR
     Dates: start: 20180517, end: 20180518
  2. AMIKLIN [Concomitant]
     Active Substance: AMIKACIN SULFATE
     Indication: LUNG DISORDER
     Dosage: UNK
     Dates: start: 20180513
  3. AMIKLIN [Concomitant]
     Active Substance: AMIKACIN SULFATE
     Dosage: UNK
     Dates: start: 20180513
  4. RIFADIN [Concomitant]
     Active Substance: RIFAMPIN
     Indication: LUNG DISORDER
     Dosage: UNK
     Dates: start: 20180513
  5. COLIMYCINE (COLISTIMETHATE SODIUM) [Concomitant]
     Active Substance: COLISTIMETHATE SODIUM
     Dosage: UNK
     Dates: start: 20180513, end: 20180516
  6. RIFADIN [Concomitant]
     Active Substance: RIFAMPIN
     Dosage: UNK
     Dates: start: 20180513

REACTIONS (3)
  - Pathogen resistance [Fatal]
  - Drug ineffective [Unknown]
  - Septic shock [Fatal]

NARRATIVE: CASE EVENT DATE: 201805
